FAERS Safety Report 11864426 (Version 2)
Quarter: 2015Q4

REPORT INFORMATION
  Report Type: Report from Study
  Country: JP (occurrence: JP)
  Receive Date: 20151223
  Receipt Date: 20151229
  Transmission Date: 20160305
  Serious: Yes (Other)
  Sender: FDA-Public Use
  Company Number: JP-009507513-1512JPN011008

PATIENT
  Age: 2 Month
  Sex: Male

DRUGS (4)
  1. DIAZOXIDE [Suspect]
     Active Substance: DIAZOXIDE
     Dosage: 6.6 MG, TID
     Route: 048
     Dates: start: 20130404, end: 20130407
  2. DIAZOXIDE [Suspect]
     Active Substance: DIAZOXIDE
     Indication: HYPERINSULINAEMIC HYPOGLYCAEMIA
     Dosage: 3.3 MG, TID
     Route: 048
     Dates: start: 20130322, end: 20130324
  3. DIAZOXIDE [Suspect]
     Active Substance: DIAZOXIDE
     Dosage: 3.3 MG, QD
     Route: 048
     Dates: start: 20130408, end: 20130425
  4. DIAZOXIDE [Suspect]
     Active Substance: DIAZOXIDE
     Dosage: 10 MG, TID
     Route: 048
     Dates: start: 20130325, end: 20130403

REACTIONS (1)
  - Epilepsy [Recovering/Resolving]

NARRATIVE: CASE EVENT DATE: 20130502
